FAERS Safety Report 24142093 (Version 1)
Quarter: 2024Q3

REPORT INFORMATION
  Report Type: Spontaneous
  Country: US (occurrence: US)
  Receive Date: 20240726
  Receipt Date: 20240726
  Transmission Date: 20241016
  Serious: Yes (Hospitalization, Other)
  Sender: CIPLA
  Company Number: US-CIPLA (EU) LIMITED-2023US04698

PATIENT

DRUGS (6)
  1. DONEPEZIL [Interacting]
     Active Substance: DONEPEZIL\DONEPEZIL HYDROCHLORIDE
     Indication: Product used for unknown indication
     Dosage: UNK
     Route: 065
  2. ORGOVYX [Interacting]
     Active Substance: RELUGOLIX
     Indication: Prostate cancer
     Dosage: 360 MILLIGRAM, QD
     Route: 048
     Dates: start: 20230522, end: 20230522
  3. ORGOVYX [Interacting]
     Active Substance: RELUGOLIX
     Dosage: 120 MILLIGRAM, QD
     Route: 048
     Dates: start: 20230523
  4. ORGOVYX [Interacting]
     Active Substance: RELUGOLIX
     Dosage: UNK
     Route: 065
  5. LEVOFLOXACIN [Concomitant]
     Active Substance: LEVOFLOXACIN
     Indication: Product used for unknown indication
     Dosage: UNK, 750 MILLIGRAM
     Route: 065
  6. IBUPROFEN [Concomitant]
     Active Substance: IBUPROFEN
     Indication: Arthralgia
     Dosage: 600 MILLIGRAM, TID
     Route: 065

REACTIONS (3)
  - Syncope [Recovered/Resolved]
  - Drug interaction [Not Recovered/Not Resolved]
  - Heart rate decreased [Recovered/Resolved]

NARRATIVE: CASE EVENT DATE: 20230727
